FAERS Safety Report 9303875 (Version 1)
Quarter: 2013Q2

REPORT INFORMATION
  Report Type: Spontaneous
  Country: FR (occurrence: FR)
  Receive Date: 20130522
  Receipt Date: 20130522
  Transmission Date: 20140414
  Serious: Yes (Hospitalization)
  Sender: FDA-Public Use
  Company Number: FR-ASTRAZENECA-2013SE34440

PATIENT
  Age: 88 Year
  Sex: Female

DRUGS (4)
  1. INEXIUM [Suspect]
     Route: 048
     Dates: start: 20120226, end: 20120304
  2. COOLMETEC [Suspect]
     Route: 048
     Dates: end: 20120303
  3. ROCEPHINE [Suspect]
     Route: 048
     Dates: start: 20120225, end: 20120228
  4. TIBERAL [Suspect]
     Route: 065
     Dates: start: 20120225, end: 20120228

REACTIONS (3)
  - Hypochloraemia [Recovered/Resolved]
  - Blood potassium decreased [Recovered/Resolved]
  - Hyponatraemia [Recovered/Resolved]
